FAERS Safety Report 8518298-7 (Version None)
Quarter: 2012Q3

REPORT INFORMATION
  Report Type: 
  Country: None (occurrence: None)
  Receive Date: 20120718
  Receipt Date: 20120214
  Transmission Date: 20120928
  Serious: No
  Sender: FDA-Public Use
  Company Number: US-BRISTOL-MYERS SQUIBB COMPANY-16339244

PATIENT
  Sex: Female

DRUGS (4)
  1. VITAMIN B6 [Concomitant]
  2. VITAMIN D [Concomitant]
  3. VITAMIN B-12 [Concomitant]
  4. COUMADIN [Suspect]
     Dosage: APPROXIMATELY FOUR MONTHS AGO,EXCEPT ONE DAY  2.5MG
     Route: 048
     Dates: start: 20110101

REACTIONS (3)
  - MUSCULAR WEAKNESS [None]
  - DISTURBANCE IN ATTENTION [None]
  - AFFECTIVE DISORDER [None]
